FAERS Safety Report 6179347-7 (Version None)
Quarter: 2009Q2

REPORT INFORMATION
  Report Type: 
  Country: None (occurrence: None)
  Receive Date: 20090501
  Receipt Date: 20090501
  Transmission Date: 20091009
  Serious: Yes (Death, Hospitalization, Other)
  Sender: FDA-Public Use
  Company Number: None

PATIENT
  Age: 52 Year
  Sex: Female

DRUGS (3)
  1. CAPECITABINE [Suspect]
     Indication: PANCREATIC CARCINOMA
     Dosage: 2000 MG/M**2 CYC PO
     Route: 048
     Dates: start: 20080523, end: 20080606
  2. REGULAR INSULIN [Concomitant]
  3. LONG-ACTING INSULIN [Concomitant]

REACTIONS (13)
  - CARDIO-RESPIRATORY ARREST [None]
  - DIARRHOEA [None]
  - HAEMOGLOBIN DECREASED [None]
  - HEPATORENAL FAILURE [None]
  - HEPATORENAL SYNDROME [None]
  - HYPOPHAGIA [None]
  - HYPOXIA [None]
  - LIVER DISORDER [None]
  - METABOLIC ACIDOSIS [None]
  - OBSTRUCTION [None]
  - PLATELET COUNT DECREASED [None]
  - RESPIRATORY ALKALOSIS [None]
  - WHITE BLOOD CELL COUNT INCREASED [None]
